FAERS Safety Report 8427199-4 (Version None)
Quarter: 2012Q2

REPORT INFORMATION
  Report Type: 
  Country: None (occurrence: None)
  Receive Date: 20120611
  Receipt Date: 20120607
  Transmission Date: 20120825
  Serious: Yes (Hospitalization, Other)
  Sender: FDA-Public Use
  Company Number: US-PFIZER INC-2012079958

PATIENT
  Sex: Female

DRUGS (6)
  1. CHANTIX [Suspect]
     Indication: SMOKING CESSATION THERAPY
     Dosage: 0.5 MG, 1X/DAY
     Route: 048
     Dates: start: 20110401, end: 20110101
  2. LAMICTAL [Concomitant]
     Indication: BIPOLAR DISORDER
     Dosage: 150 MG A DAY
  3. LAMICTAL [Concomitant]
     Dosage: 100 MG, ONE AND HALF A DAY
  4. CHANTIX [Suspect]
     Dosage: 1 MG, 2X/DAY
     Route: 048
     Dates: start: 20110401, end: 20110617
  5. WELLBUTRIN XL [Concomitant]
     Dosage: 150 MG A DAY
  6. SEROQUEL [Concomitant]
     Indication: BIPOLAR DISORDER
     Dosage: 100 MG, 1X/DAY

REACTIONS (3)
  - PELVIC FRACTURE [None]
  - URINARY TRACT INFECTION [None]
  - MEMORY IMPAIRMENT [None]
